FAERS Safety Report 14525823 (Version 1)
Quarter: 2018Q1

REPORT INFORMATION
  Report Type: Spontaneous
  Country: PL (occurrence: PL)
  Receive Date: 20180213
  Receipt Date: 20180213
  Transmission Date: 20180509
  Serious: Yes (Other)
  Sender: FDA-Public Use
  Company Number: PL-MYLANLABS-2018M1009122

PATIENT
  Age: 34 Year
  Sex: Female

DRUGS (6)
  1. IMMUNOGLOBULIN                     /00025201/ [Concomitant]
     Active Substance: HUMAN IMMUNOGLOBULIN G
     Indication: PRODUCT USED FOR UNKNOWN INDICATION
  2. IMMUNOGLOBULIN                     /00025201/ [Concomitant]
     Active Substance: HUMAN IMMUNOGLOBULIN G
     Indication: PRODUCT USED FOR UNKNOWN INDICATION
  3. DEXAMETHASONE. [Suspect]
     Active Substance: DEXAMETHASONE
     Indication: PRODUCT USED FOR UNKNOWN INDICATION
  4. FACTOR VII [Concomitant]
     Active Substance: COAGULATION FACTOR VII HUMAN
     Indication: PRODUCT USED FOR UNKNOWN INDICATION
  5. FACTOR VII [Concomitant]
     Active Substance: COAGULATION FACTOR VII HUMAN
     Indication: PRODUCT USED FOR UNKNOWN INDICATION
  6. PREDNISONE. [Suspect]
     Active Substance: PREDNISONE
     Indication: ACQUIRED HAEMOPHILIA

REACTIONS (1)
  - Diabetes mellitus [Unknown]
